FAERS Safety Report 20844843 (Version 2)
Quarter: 2022Q2

REPORT INFORMATION
  Report Type: Spontaneous
  Country: US (occurrence: US)
  Receive Date: 20220518
  Receipt Date: 20220526
  Transmission Date: 20220721
  Serious: No
  Sender: FDA-Public Use
  Company Number: US-AMGEN-USASP2022083893

PATIENT
  Age: 41 Year
  Sex: Female

DRUGS (8)
  1. AIMOVIG [Suspect]
     Active Substance: ERENUMAB-AOOE
     Indication: Headache
     Dosage: 140 MILLIGRAM
     Route: 065
     Dates: start: 202203
  2. NURTEC ODT [Concomitant]
     Active Substance: RIMEGEPANT SULFATE
     Indication: Product used for unknown indication
     Route: 065
  3. NURTEC ODT [Concomitant]
     Active Substance: RIMEGEPANT SULFATE
     Route: 065
  4. NURTEC ODT [Concomitant]
     Active Substance: RIMEGEPANT SULFATE
     Route: 065
  5. NURTEC ODT [Concomitant]
     Active Substance: RIMEGEPANT SULFATE
     Route: 065
  6. NURTEC ODT [Concomitant]
     Active Substance: RIMEGEPANT SULFATE
     Route: 065
  7. NURTEC ODT [Concomitant]
     Active Substance: RIMEGEPANT SULFATE
     Route: 065
  8. NURTEC ODT [Concomitant]
     Active Substance: RIMEGEPANT SULFATE
     Route: 065

REACTIONS (3)
  - Headache [Not Recovered/Not Resolved]
  - Device difficult to use [Unknown]
  - Drug dose omission by device [Unknown]

NARRATIVE: CASE EVENT DATE: 20220430
